FAERS Safety Report 6054466-4 (Version None)
Quarter: 2009Q1

REPORT INFORMATION
  Report Type: 
  Country: None (occurrence: None)
  Receive Date: 20090127
  Receipt Date: 20090122
  Transmission Date: 20090719
  Serious: Yes (Hospitalization)
  Sender: FDA-Public Use
  Company Number: US-GILEAD-2009-0019973

PATIENT
  Sex: Male

DRUGS (10)
  1. LETAIRIS [Suspect]
     Indication: PULMONARY ARTERIAL HYPERTENSION
     Route: 048
     Dates: start: 20080502
  2. ATENOLOL [Concomitant]
  3. ASPIRIN [Concomitant]
  4. BUMETANIDE [Concomitant]
  5. LASIX [Concomitant]
  6. CELEXA [Concomitant]
  7. CYCLOBENZAPRINE HCL [Concomitant]
  8. TRAZODONE HCL [Concomitant]
  9. PROTONIX [Concomitant]
  10. DOCUSATE SODIUM [Concomitant]

REACTIONS (2)
  - PULMONARY ARTERIAL WEDGE PRESSURE INCREASED [None]
  - PULMONARY OEDEMA [None]
